FAERS Safety Report 19389533 (Version 6)
Quarter: 2023Q4

REPORT INFORMATION
  Report Type: Spontaneous
  Country: US (occurrence: US)
  Receive Date: 20210608
  Receipt Date: 20231020
  Transmission Date: 20240110
  Serious: No
  Sender: FDA-Public Use
  Company Number: US-PFIZER INC-2021018837

PATIENT
  Age: 77 Year
  Sex: Female

DRUGS (1)
  1. XALKORI [Suspect]
     Active Substance: CRIZOTINIB
     Indication: Lung carcinoma cell type unspecified recurrent
     Dosage: 250 MG, 2X/DAY, [DIRECTIONS SIG: TAKE CAPSULE (250MG) BY MOUTH 2(TWO) TIMES A DAY]
     Route: 048

REACTIONS (3)
  - Spondylitis [Unknown]
  - Pain [Unknown]
  - Diarrhoea [Unknown]
